FAERS Safety Report 10423116 (Version 1)
Quarter: 2014Q3

REPORT INFORMATION
  Report Type: Spontaneous
  Country: US (occurrence: None)
  Receive Date: 20140722
  Receipt Date: 20140722
  Transmission Date: 20150326
  Serious: No
  Sender: FDA-Public Use
  Company Number: 163-10004-14060218

PATIENT
  Age: 35 Year
  Sex: Female

DRUGS (4)
  1. PLAQUENIL(HYDROXYCHLOROQUINE PHOSPHATE)(UNKNOWN) [Concomitant]
  2. OTEZLA [Suspect]
     Active Substance: APREMILAST
     Indication: PSORIATIC ARTHROPATHY
     Dosage: 2 IN 1 D
     Route: 048
     Dates: start: 20140522
  3. MELOXICAM(MELOXICAM) (UNKNOWN) [Concomitant]
  4. ASIX(FUROSEMIDE)(UNKNOWN) [Concomitant]

REACTIONS (3)
  - Vomiting [None]
  - Diarrhoea [None]
  - Nausea [None]

NARRATIVE: CASE EVENT DATE: 20140528
